FAERS Safety Report 5802774-1 (Version None)
Quarter: 2008Q3

REPORT INFORMATION
  Report Type: 
  Country: None (occurrence: None)
  Receive Date: 20080703
  Receipt Date: 20080625
  Transmission Date: 20090109
  Serious: Yes (Life-Threatening, Hospitalization)
  Sender: FDA-Public Use
  Company Number: CERZ-1000245

PATIENT
  Age: 19 Year
  Sex: Female
  Weight: 30 kg

DRUGS (1)
  1. CEREZYME (IMIGLUCERASE) PWDER FOR SOLUTION FOR INFUSION [Suspect]
     Indication: GAUCHER'S DISEASE
     Dosage: 1800 U, INTRAVENOUS
     Route: 042
     Dates: start: 20070726, end: 20080401

REACTIONS (1)
  - CATHETER SEPSIS [None]
